FAERS Safety Report 8322899-9 (Version None)
Quarter: 2012Q2

REPORT INFORMATION
  Report Type: 
  Country: None (occurrence: None)
  Receive Date: 20120430
  Receipt Date: 20110808
  Transmission Date: 20120825
  Serious: Yes (Other)
  Sender: FDA-Public Use
  Company Number: US-TEVA-US022304

PATIENT
  Sex: Female
  Weight: 68 kg

DRUGS (7)
  1. DEPAKENE [Concomitant]
     Indication: CONVULSION
     Dosage: 2250 MILLIGRAM;
     Route: 048
     Dates: start: 20070101
  2. PROVIGIL [Suspect]
     Indication: CRANIOCEREBRAL INJURY
     Dosage: 100 MILLIGRAM;
     Route: 048
     Dates: start: 20080113
  3. PREVACID [Concomitant]
     Indication: GASTROOESOPHAGEAL REFLUX DISEASE
     Dosage: 30 MILLIGRAM;
     Route: 048
     Dates: start: 20070101
  4. TRAZODONE HCL [Concomitant]
     Indication: SLEEP DISORDER
     Dosage: 25 MILLIGRAM; TAKES 25MG OR UP TO 75MG
     Route: 048
     Dates: start: 20070101
  5. BACLOFEN [Concomitant]
     Indication: MUSCLE SPASTICITY
     Dosage: PUMP
     Route: 042
     Dates: start: 20070101
  6. PROZAC [Concomitant]
     Indication: DEPRESSION
     Dosage: 40 MILLIGRAM;
     Route: 048
     Dates: start: 20070101
  7. CIPROFLOXACIN HCL [Concomitant]
     Indication: INFECTION PROPHYLAXIS
     Dosage: 100 MILLIGRAM;
     Route: 048
     Dates: start: 20070101

REACTIONS (4)
  - INSOMNIA [None]
  - AGITATION [None]
  - DIARRHOEA [None]
  - AGGRESSION [None]
